FAERS Safety Report 24769767 (Version 2)
Quarter: 2024Q4

REPORT INFORMATION
  Report Type: Spontaneous
  Country: US (occurrence: US)
  Receive Date: 20241224
  Receipt Date: 20241224
  Transmission Date: 20250115
  Serious: Yes (Other)
  Sender: ROCHE
  Company Number: US-ROCHE-10000155283

PATIENT
  Age: 56 Year
  Sex: Female
  Weight: 77.11 kg

DRUGS (7)
  1. RITUXIMAB [Suspect]
     Active Substance: RITUXIMAB
     Indication: Chronic lymphocytic leukaemia
     Route: 050
     Dates: end: 20240229
  2. VENCLEXTA [Suspect]
     Active Substance: VENETOCLAX
     Indication: Chronic lymphocytic leukaemia
     Dosage: MEDICATION IS TITRATED UP STARTING AT 50MG, ENDED AT 400MG. ALL?400MGS WERE TAKEN AT ONCE
     Route: 048
     Dates: end: 20240529
  3. GAZYVA [Suspect]
     Active Substance: OBINUTUZUMAB
     Indication: Chronic lymphocytic leukaemia
     Dosage: TAKEN BECAUSE WHITE COUNT SO HIGH
     Route: 050
     Dates: start: 202108, end: 202201
  4. HYDROCHLOROTHIAZIDE [Suspect]
     Active Substance: HYDROCHLOROTHIAZIDE
     Indication: Hypertension
     Route: 065
  5. BENADRYL [Concomitant]
     Active Substance: DIPHENHYDRAMINE HYDROCHLORIDE
  6. HUMAN IMMUNOGLOBULIN G [Concomitant]
     Active Substance: HUMAN IMMUNOGLOBULIN G
     Indication: Chronic lymphocytic leukaemia
     Route: 050
     Dates: start: 202309, end: 202411
  7. PREDNISONE [Concomitant]
     Active Substance: PREDNISONE

REACTIONS (27)
  - Headache [Recovering/Resolving]
  - Gait disturbance [Not Recovered/Not Resolved]
  - Nausea [Recovering/Resolving]
  - Platelet count decreased [Unknown]
  - White blood cell count decreased [Unknown]
  - Hypertension [Recovering/Resolving]
  - Tremor [Not Recovered/Not Resolved]
  - Asthenia [Not Recovered/Not Resolved]
  - Arthritis [Not Recovered/Not Resolved]
  - Joint noise [Not Recovered/Not Resolved]
  - Extrasystoles [Recovered/Resolved]
  - Dyspnoea [Recovered/Resolved]
  - Skin exfoliation [Not Recovered/Not Resolved]
  - Trichorrhexis [Not Recovered/Not Resolved]
  - Gastrooesophageal reflux disease [Recovered/Resolved]
  - Rash macular [Not Recovered/Not Resolved]
  - Arthritis [Not Recovered/Not Resolved]
  - Weight decreased [Recovered/Resolved]
  - Burning sensation [Recovered/Resolved]
  - Appendicitis [Recovered/Resolved with Sequelae]
  - Hernia [Not Recovered/Not Resolved]
  - Off label use [Unknown]
  - Chronic lymphocytic leukaemia recurrent [Unknown]
  - General physical health deterioration [Unknown]
  - Illness [Unknown]
  - Immunosuppression [Unknown]
  - Feeling abnormal [Unknown]

NARRATIVE: CASE EVENT DATE: 20210801
